FAERS Safety Report 10223056 (Version 2)
Quarter: 2014Q2

REPORT INFORMATION
  Report Type: Spontaneous
  Country: JP (occurrence: JP)
  Receive Date: 20140607
  Receipt Date: 20140618
  Transmission Date: 20141212
  Serious: Yes (Other)
  Sender: FDA-Public Use
  Company Number: PHHY2014JP069477

PATIENT
  Sex: Male

DRUGS (2)
  1. ZOMETA [Suspect]
     Indication: METASTASES TO BONE
     Dosage: UNK UKN, UNK
     Route: 041
     Dates: start: 201303
  2. TARCEVA [Suspect]
     Dosage: UNK UKN, UNK
     Dates: start: 20140105

REACTIONS (3)
  - Osteonecrosis of jaw [Not Recovered/Not Resolved]
  - Bone pain [Unknown]
  - Exposed bone in jaw [Unknown]
